FAERS Safety Report 5718391-8 (Version None)
Quarter: 2008Q2

REPORT INFORMATION
  Report Type: 
  Country: None (occurrence: None)
  Receive Date: 20080425
  Receipt Date: 20070907
  Transmission Date: 20081010
  Serious: No
  Sender: FDA-Public Use
  Company Number: A0679687A

PATIENT
  Sex: Female

DRUGS (3)
  1. DEXEDRINE [Suspect]
     Indication: DRUG USE FOR UNKNOWN INDICATION
     Route: 065
  2. PAIN MEDICATIONS [Concomitant]
  3. UNKNOWN MEDICATION [Concomitant]

REACTIONS (5)
  - DRY MOUTH [None]
  - EYE PAIN [None]
  - OVERDOSE [None]
  - VISION BLURRED [None]
  - VISUAL DISTURBANCE [None]
